FAERS Safety Report 6807640-0 (Version None)
Quarter: 2010Q2

REPORT INFORMATION
  Report Type: 
  Country: None (occurrence: None)
  Receive Date: 20100629
  Receipt Date: 20081118
  Transmission Date: 20101027
  Serious: No
  Sender: FDA-Public Use
  Company Number: US-PFIZER INC-2008098286

PATIENT
  Age: 61 Year
  Sex: Female

DRUGS (1)
  1. ZYVOX [Suspect]
     Dosage: UNK
     Dates: start: 20070701

REACTIONS (3)
  - CATARACT [None]
  - HYPOAESTHESIA [None]
  - VISUAL IMPAIRMENT [None]
